FAERS Safety Report 5944564-5 (Version None)
Quarter: 2008Q4

REPORT INFORMATION
  Report Type: 
  Country: None (occurrence: None)
  Receive Date: 20081105
  Receipt Date: 20081027
  Transmission Date: 20090506
  Serious: Yes (Hospitalization, Other)
  Sender: FDA-Public Use
  Company Number: 2008AP002938

PATIENT
  Age: 30 Year
  Sex: Female

DRUGS (3)
  1. CYCLOSPORINE [Suspect]
  2. MYCOPHENOLATE MOFETIL [Suspect]
  3. PREDNISONE TAB [Suspect]

REACTIONS (1)
  - BILE DUCT CANCER [None]
